FAERS Safety Report 4659037-X (Version None)
Quarter: 2005Q2

REPORT INFORMATION
  Report Type: 
  Country: None (occurrence: None)
  Receive Date: 20050509
  Receipt Date: 20050429
  Transmission Date: 20051028
  Serious: Yes (Hospitalization)
  Sender: FDA-Public Use
  Company Number: A0556259A

PATIENT
  Age: 50 Year
  Sex: Female

DRUGS (8)
  1. ALKERAN [Suspect]
     Indication: MULTIPLE MYELOMA
     Dosage: 350 MG/INTRAVENOUS
     Route: 042
     Dates: start: 20040628
  2. THALIDOMIDE             (THALIDOMIDE) [Suspect]
     Indication: MULTIPLE MYELOMA
     Dosage: 100 MG/DAY
  3. ACYCLOVIR [Concomitant]
  4. PANTOPRAZOLE SODIUM [Concomitant]
  5. DOXYCYCLINE [Concomitant]
  6. LORAZEPAM [Concomitant]
  7. SERTRALINE HYDROCHLORIDE [Concomitant]
  8. FENTANYL [Concomitant]

REACTIONS (7)
  - DIARRHOEA [None]
  - INFUSION SITE ERYTHEMA [None]
  - NAUSEA [None]
  - PARAINFLUENZAE VIRUS INFECTION [None]
  - PYREXIA [None]
  - SINUSITIS [None]
  - VOMITING [None]
